FAERS Safety Report 12968469 (Version 2)
Quarter: 2017Q1

REPORT INFORMATION
  Report Type: Spontaneous
  Country: US (occurrence: US)
  Receive Date: 20161123
  Receipt Date: 20170214
  Transmission Date: 20170428
  Serious: No
  Sender: FDA-Public Use
  Company Number: US-009507513-1610USA013741

PATIENT
  Age: 72 Year
  Sex: Female
  Weight: 80.2 kg

DRUGS (6)
  1. INTRON A [Suspect]
     Active Substance: INTERFERON ALFA-2B
     Indication: MYCOSIS FUNGOIDES
     Dosage: STRENGTH: 18 MU/ML; 0.25 ML, TIW
     Route: 058
     Dates: start: 20161027
  2. UREADIN (UREA) [Concomitant]
  3. CARBOXYMETHYLCELLULOSE SODIUM. [Concomitant]
     Active Substance: CARBOXYMETHYLCELLULOSE SODIUM
  4. TRIAMCINOLONE [Concomitant]
     Active Substance: TRIAMCINOLONE
  5. LEVOTHYROXINE SODIUM. [Concomitant]
     Active Substance: LEVOTHYROXINE SODIUM
  6. PERCOGESIC ORIGINAL STRENGTH [Concomitant]
     Active Substance: ACETAMINOPHEN\DIPHENHYDRAMINE

REACTIONS (4)
  - Paraesthesia [Unknown]
  - Product use issue [Unknown]
  - Thermal burn [Unknown]
  - Back pain [Unknown]

NARRATIVE: CASE EVENT DATE: 201610
